FAERS Safety Report 17458535 (Version 1)
Quarter: 2020Q1

REPORT INFORMATION
  Report Type: Spontaneous
  Country: CA (occurrence: CA)
  Receive Date: 20200225
  Receipt Date: 20200225
  Transmission Date: 20200409
  Serious: Yes (Other)
  Sender: FDA-Public Use
  Company Number: CA-SA-2020SA045718

PATIENT
  Sex: Female

DRUGS (11)
  1. ACTEMRA [Suspect]
     Active Substance: TOCILIZUMAB
  2. METHOTREXATE. [Concomitant]
     Active Substance: METHOTREXATE
     Dosage: 20 MG, QW
     Dates: start: 201201, end: 201202
  3. HYDROXYCHLOROQUINE [Suspect]
     Active Substance: HYDROXYCHLOROQUINE
     Dosage: 200 MG, QD (1 AND 1/2 TABLETS)
     Route: 048
     Dates: start: 20190311
  4. REMICADE [Suspect]
     Active Substance: INFLIXIMAB
  5. ENBREL [Concomitant]
     Active Substance: ETANERCEPT
  6. PREDNISONE. [Suspect]
     Active Substance: PREDNISONE
     Dosage: (ON AND OFF , LAST TAKEN IN JUN -2019)
  7. HUMIRA [Suspect]
     Active Substance: ADALIMUMAB
  8. SULFASALAZINE. [Concomitant]
     Active Substance: SULFASALAZINE
     Dosage: UNK
     Dates: start: 200503
  9. CIMZIA [Suspect]
     Active Substance: CERTOLIZUMAB PEGOL
     Dosage: UNK
     Route: 058
     Dates: start: 201508, end: 201902
  10. LEFLUNOMIDE. [Suspect]
     Active Substance: LEFLUNOMIDE
     Dosage: 20 MG, QD
     Dates: start: 201507
  11. LEFLUNOMIDE. [Suspect]
     Active Substance: LEFLUNOMIDE
     Dosage: 20 MG, QD
     Dates: start: 20191024

REACTIONS (5)
  - Drug ineffective [Unknown]
  - Encephalitis [Unknown]
  - Meningitis [Unknown]
  - Treatment failure [Unknown]
  - Unevaluable event [Unknown]
